FAERS Safety Report 6890105-8 (Version None)
Quarter: 2010Q3

REPORT INFORMATION
  Report Type: 
  Country: None (occurrence: None)
  Receive Date: 20100730
  Receipt Date: 20080807
  Transmission Date: 20110219
  Serious: No
  Sender: FDA-Public Use
  Company Number: US-PFIZER INC-2008064570

PATIENT
  Sex: Female
  Weight: 54.545 kg

DRUGS (12)
  1. LIPITOR [Suspect]
     Indication: BLOOD CHOLESTEROL
     Dates: start: 20080701
  2. ALL OTHER THERAPEUTIC PRODUCTS [Concomitant]
  3. INSULIN [Concomitant]
  4. PENTOXIFYLLINE [Concomitant]
  5. PROCARDIA [Concomitant]
  6. VASOTEC [Concomitant]
  7. LEVOXYL [Concomitant]
  8. METOPROLOL TARTRATE [Concomitant]
  9. PLAVIX [Concomitant]
  10. VITAMINS [Concomitant]
  11. CALCIUM [Concomitant]
  12. ACETYLSALICYLIC ACID SRT [Concomitant]

REACTIONS (5)
  - ABDOMINAL DISTENSION [None]
  - COELIAC DISEASE [None]
  - DIARRHOEA [None]
  - FATIGUE [None]
  - MEDICATION ERROR [None]
